FAERS Safety Report 11363397 (Version 8)
Quarter: 2015Q4

REPORT INFORMATION
  Report Type: Report from Study
  Country: CA (occurrence: CA)
  Receive Date: 20150811
  Receipt Date: 20151110
  Transmission Date: 20160304
  Serious: Yes (Hospitalization, Other)
  Sender: FDA-Public Use
  Company Number: CA-ROCHE-1467206

PATIENT
  Age: 59 Year
  Sex: Male

DRUGS (11)
  1. AVASTIN [Suspect]
     Active Substance: BEVACIZUMAB
     Route: 042
  2. DEXAMETHASONE. [Concomitant]
     Active Substance: DEXAMETHASONE
  3. TEMODAL [Suspect]
     Active Substance: TEMOZOLOMIDE
     Indication: PRODUCT USED FOR UNKNOWN INDICATION
     Route: 065
     Dates: start: 20130313
  4. GRANISETRON [Concomitant]
     Active Substance: GRANISETRON
     Dosage: DURING TEMODAL CYCLE
     Route: 065
  5. AVASTIN [Suspect]
     Active Substance: BEVACIZUMAB
     Indication: GLIOBLASTOMA
     Route: 042
     Dates: start: 20140819, end: 20151013
  6. TEMODAL [Suspect]
     Active Substance: TEMOZOLOMIDE
     Dosage: STARTED ON 28 ARI
     Route: 065
  7. DECADRON (CANADA) [Concomitant]
  8. FLOMAX [Concomitant]
     Active Substance: TAMSULOSIN HYDROCHLORIDE
  9. NORVASC [Concomitant]
     Active Substance: AMLODIPINE BESYLATE
  10. PANTOLOC [Concomitant]
     Active Substance: PANTOPRAZOLE SODIUM
  11. AVODART [Concomitant]
     Active Substance: DUTASTERIDE

REACTIONS (22)
  - Lung abscess [Unknown]
  - Intestinal perforation [Recovered/Resolved]
  - Blood pressure increased [Unknown]
  - Deep vein thrombosis [Unknown]
  - Muscular weakness [Not Recovered/Not Resolved]
  - Platelet count decreased [Unknown]
  - Post procedural swelling [Unknown]
  - Nasopharyngitis [Recovered/Resolved]
  - Skin abrasion [Recovering/Resolving]
  - Medication error [Unknown]
  - Rash [Not Recovered/Not Resolved]
  - Blood pressure increased [Unknown]
  - Pneumonia [Not Recovered/Not Resolved]
  - Neoplasm [Not Recovered/Not Resolved]
  - Prostatomegaly [Unknown]
  - Abdominal pain [Unknown]
  - Fluid retention [Unknown]
  - Blood urine present [Unknown]
  - Urinary retention [Unknown]
  - Hypertension [Unknown]
  - Infusion related reaction [Unknown]
  - Swelling [Recovering/Resolving]

NARRATIVE: CASE EVENT DATE: 201409
